FAERS Safety Report 13961155 (Version 1)
Quarter: 2017Q3

REPORT INFORMATION
  Report Type: Spontaneous
  Country: US (occurrence: US)
  Receive Date: 20170912
  Receipt Date: 20170912
  Transmission Date: 20171128
  Serious: Yes (Life-Threatening, Other)
  Sender: FDA-Public Use
  Company Number: US-FRESENIUS KABI-FK201707568

PATIENT
  Age: 59 Year
  Sex: Female

DRUGS (2)
  1. CEFEPIME [Concomitant]
     Active Substance: CEFEPIME HYDROCHLORIDE
     Indication: SEPSIS
     Route: 065
  2. VANCOMYCIN (MANUFACTURER UNKNOWN) [Suspect]
     Active Substance: VANCOMYCIN
     Indication: SEPSIS
     Route: 065

REACTIONS (6)
  - Haemorrhage [Unknown]
  - Thrombocytopenia [Recovering/Resolving]
  - Acute kidney injury [Unknown]
  - Thrombotic thrombocytopenic purpura [Unknown]
  - Pulmonary haemorrhage [Unknown]
  - Anaemia [Unknown]
